FAERS Safety Report 10223953 (Version 1)
Quarter: 2014Q2

REPORT INFORMATION
  Report Type: Spontaneous
  Country: US (occurrence: US)
  Receive Date: 20140609
  Receipt Date: 20140609
  Transmission Date: 20141212
  Serious: No
  Sender: FDA-Public Use
  Company Number: US-009507513-1405USA000537

PATIENT
  Age: 48 Year
  Sex: Female
  Weight: 88.89 kg

DRUGS (3)
  1. CLARITIN-D-24 [Suspect]
     Indication: HYPERSENSITIVITY
     Dosage: UNK, PRN
     Route: 048
  2. CLARITIN-D-24 [Suspect]
     Dosage: UNK, BID
     Route: 048
     Dates: start: 20140411
  3. LISINOPRIL [Concomitant]
     Indication: PRODUCT USED FOR UNKNOWN INDICATION
     Dosage: 20 MG, QD

REACTIONS (1)
  - Inappropriate schedule of drug administration [Unknown]
